FAERS Safety Report 8999514 (Version 1)
Quarter: 2013Q1

REPORT INFORMATION
  Report Type: Spontaneous
  Country: US (occurrence: US)
  Receive Date: 20130103
  Receipt Date: 20130103
  Transmission Date: 20140127
  Serious: No
  Sender: FDA-Public Use
  Company Number: US-BAYER-2013-000555

PATIENT
  Age: 62 Year
  Sex: Female
  Weight: 81.63 kg

DRUGS (1)
  1. ALEVE CAPLET/TABLET,MIDOL EXTENDED RELIEF CAPLET [Suspect]
     Dosage: 1 DF, PRN
     Route: 048
     Dates: start: 2012, end: 20121227

REACTIONS (1)
  - Abdominal discomfort [Recovered/Resolved]
